FAERS Safety Report 11799675 (Version 1)
Quarter: 2015Q4

REPORT INFORMATION
  Report Type: Spontaneous
  Country: US (occurrence: US)
  Receive Date: 20151203
  Receipt Date: 20151203
  Transmission Date: 20160305
  Serious: No
  Sender: FDA-Public Use
  Company Number: US-PFIZER INC-2015411405

PATIENT
  Sex: Male

DRUGS (1)
  1. SERTRALINE HCL [Suspect]
     Active Substance: SERTRALINE HYDROCHLORIDE
     Indication: ANXIETY
     Dosage: 12 MG, 1X/DAY, MIXED IN WATER, TAKEN WITH FOOD
     Route: 048
     Dates: start: 20151115, end: 20151121

REACTIONS (1)
  - Drug ineffective [Unknown]
